FAERS Safety Report 6183877-1 (Version None)
Quarter: 2009Q2

REPORT INFORMATION
  Report Type: 
  Country: None (occurrence: None)
  Receive Date: 20090508
  Receipt Date: 20090427
  Transmission Date: 20091009
  Serious: Yes (Death)
  Sender: FDA-Public Use
  Company Number: IT-ROCHE-629902

PATIENT

DRUGS (5)
  1. MYCOPHENOLATE MOFETIL [Suspect]
     Route: 048
  2. TACROLIMUS [Suspect]
     Route: 065
  3. TACROLIMUS [Suspect]
     Dosage: PREVIOUS DOSE REDUCED BY 10-30% EVERY 2 WEEKS; FROM 2.5 TO 3.5 NG/ML AFTER ONE MONTH.
     Route: 065
  4. CYCLOSPORINE [Suspect]
     Route: 065
  5. CYCLOSPORINE [Suspect]
     Dosage: PREVIOUS DOSE REDUCED BY 10-30% EVERY 2 WEEKS; FROM 44 TO 55 NG/ML AFTER ONE MONTH.
     Route: 065

REACTIONS (2)
  - BILE DUCT STENOSIS [None]
  - HEPATIC FAILURE [None]
